FAERS Safety Report 13168427 (Version 1)
Quarter: 2017Q1

REPORT INFORMATION
  Report Type: Spontaneous
  Country: US (occurrence: US)
  Receive Date: 20170131
  Receipt Date: 20170131
  Transmission Date: 20170428
  Serious: No
  Sender: FDA-Public Use
  Company Number: US-PFIZER INC-2017037176

PATIENT
  Age: 21 Year
  Sex: Female

DRUGS (2)
  1. XANAX [Concomitant]
     Active Substance: ALPRAZOLAM
     Dosage: UNK
  2. ZOLOFT [Suspect]
     Active Substance: SERTRALINE HYDROCHLORIDE
     Dosage: 50 MG, 1X/DAY

REACTIONS (6)
  - Nausea [Unknown]
  - Anxiety [Unknown]
  - Panic reaction [Unknown]
  - Mydriasis [Unknown]
  - Decreased appetite [Unknown]
  - Tremor [Unknown]
